FAERS Safety Report 10173207 (Version 1)
Quarter: 2014Q2

REPORT INFORMATION
  Report Type: Spontaneous
  Country: US (occurrence: None)
  Receive Date: 20140415
  Receipt Date: 20140415
  Transmission Date: 20141212
  Serious: Yes (Other)
  Sender: FDA-Public Use
  Company Number: ALL1-2013-07650

PATIENT
  Age: 9 Year
  Sex: Male
  Weight: 32.7 kg

DRUGS (4)
  1. VYVANSE [Suspect]
     Indication: ATTENTION DEFICIT/HYPERACTIVITY DISORDER
     Dosage: 80 MG, 1X/DAY:QD, ORAL
     Route: 048
     Dates: start: 2010, end: 2013
  2. METADATE [Concomitant]
  3. CLONIDINE (CLONIIDINE) [Concomitant]
  4. SINGULAIR (MONTELUKAST SODIUM) TABLET [Concomitant]

REACTIONS (10)
  - Hypersensitivity [None]
  - Dyspnoea [None]
  - Chest discomfort [None]
  - Pruritus [None]
  - Asthma [None]
  - Weight increased [None]
  - Hunger [None]
  - Urticaria [None]
  - Drug ineffective [None]
  - Product quality issue [None]
